FAERS Safety Report 7483305-X (Version None)
Quarter: 2011Q2

REPORT INFORMATION
  Report Type: 
  Country: None (occurrence: None)
  Receive Date: 20110517
  Receipt Date: 20110503
  Transmission Date: 20111010
  Serious: Yes (Hospitalization)
  Sender: FDA-Public Use
  Company Number: US-BAYER-201041793NA

PATIENT
  Age: 16 Year
  Sex: Female
  Weight: 88.435 kg

DRUGS (5)
  1. PREVACID [Concomitant]
  2. MAXALT [Concomitant]
  3. FLEXERIL [Concomitant]
  4. AMITRIPTYLINE HCL [Concomitant]
  5. YAZ [Suspect]
     Indication: PRODUCT USED FOR UNKNOWN INDICATION
     Route: 048
     Dates: start: 20071001, end: 20080101

REACTIONS (2)
  - SUPERIOR SAGITTAL SINUS THROMBOSIS [None]
  - PAIN [None]
